FAERS Safety Report 7738962-7 (Version None)
Quarter: 2011Q3

REPORT INFORMATION
  Report Type: 
  Country: None (occurrence: None)
  Receive Date: 20110906
  Receipt Date: 20110822
  Transmission Date: 20111222
  Serious: Yes (Other)
  Sender: FDA-Public Use
  Company Number: TPA2011A05126

PATIENT
  Age: 65 Year
  Sex: Male

DRUGS (3)
  1. GLYBURIDE [Concomitant]
  2. GLUCOPHAGE [Concomitant]
  3. ACTOS [Suspect]
     Indication: TYPE 2 DIABETES MELLITUS
     Dosage: 45 MG
     Dates: start: 20060101, end: 20110601

REACTIONS (1)
  - BLADDER CANCER [None]
